FAERS Safety Report 6588021-4 (Version None)
Quarter: 2010Q1

REPORT INFORMATION
  Report Type: 
  Country: None (occurrence: None)
  Receive Date: 20100218
  Receipt Date: 20100215
  Transmission Date: 20100710
  Serious: Yes (Disabling)
  Sender: FDA-Public Use
  Company Number: US-ROXANE LABORATORIES, INC.-2009-RO-00780RO

PATIENT
  Age: 30 Year
  Sex: Female

DRUGS (6)
  1. METHADONE [Suspect]
     Indication: PAIN
     Dosage: 45 MG
  2. METHADONE [Suspect]
  3. DIAZEPAM [Suspect]
     Indication: DEPRESSION
  4. DIAZEPAM [Suspect]
     Indication: ANXIETY
  5. ESCITALOPRAM [Suspect]
     Indication: DEPRESSION
  6. ESCITALOPRAM [Suspect]
     Indication: ANXIETY

REACTIONS (1)
  - BREATHING-RELATED SLEEP DISORDER [None]
